FAERS Safety Report 4540460-9 (Version None)
Quarter: 2004Q4

REPORT INFORMATION
  Report Type: 
  Country: None (occurrence: None)
  Receive Date: 20041228
  Receipt Date: 20041213
  Transmission Date: 20050328
  Serious: Yes (Life-Threatening, Hospitalization, Other)
  Sender: FDA-Public Use
  Company Number: 2004S1003460

PATIENT
  Age: 63 Year
  Sex: Male
  Weight: 36.4692 kg

DRUGS (20)
  1. METOPROLOL TARTRATE [Suspect]
     Indication: HEART RATE
     Dosage: 100 MG BID, ORAL
     Route: 048
  2. METOPROLOL TARTRATE [Suspect]
     Indication: TACHYCARDIA
     Dosage: 100 MG BID, ORAL
     Route: 048
  3. ASPIRIN [Concomitant]
  4. CIPROFLOXACIN [Concomitant]
  5. LISINOPRIL [Concomitant]
  6. MULTIVITAMIN [Concomitant]
  7. PANTOPRAZOLE SODIUM [Concomitant]
  8. GRANISETRON [Concomitant]
  9. OXYCODONE AND ACETAMINOPHEN [Concomitant]
  10. APAP SUPPOSITORY [Concomitant]
  11. ALPRAZOLAM [Concomitant]
  12. CHLORPROMAZINE [Concomitant]
  13. DIPHENHYDRAMINE HCL [Concomitant]
  14. MORPHINE [Concomitant]
  15. DEXAMETHOSONE [Concomitant]
  16. FUROSEMIDE [Concomitant]
  17. HYDRALAZINE [Concomitant]
  18. PHYTONADIONE [Concomitant]
  19. METOCLOPRAMIDE [Concomitant]
  20. MORPHINE [Concomitant]

REACTIONS (2)
  - DRUG EFFECT DECREASED [None]
  - VENTRICULAR TACHYCARDIA [None]
